FAERS Safety Report 21620432 (Version 2)
Quarter: 2024Q3

REPORT INFORMATION
  Report Type: Report from Study
  Country: EG (occurrence: EG)
  Receive Date: 20221121
  Receipt Date: 20240910
  Transmission Date: 20241017
  Serious: Yes (Other)
  Sender: NOVARTIS
  Company Number: EG-002147023-NVSC2022EG244008

PATIENT
  Sex: Male
  Weight: 108 kg

DRUGS (3)
  1. COSENTYX [Suspect]
     Active Substance: SECUKINUMAB
     Indication: Psoriasis
     Dosage: 150 MG, QW  FOR  4 WEEKS AS A LOADING DOSE THEN 2 PREFILLED PEN OF COSENTYX  150 MG MONTHLY FOR 5 MO
     Route: 058
     Dates: start: 20221019
  2. COSENTYX [Suspect]
     Active Substance: SECUKINUMAB
     Dosage: 150 MG, ONCE A WEEK FOR 6 MONTHS
     Route: 058
     Dates: start: 2022, end: 2023
  3. COSENTYX [Suspect]
     Active Substance: SECUKINUMAB
     Dosage: 150 MG, ONCE EVERY MONTH FOR 6 MONTHS
     Route: 058

REACTIONS (8)
  - Rash [Recovering/Resolving]
  - Influenza [Recovered/Resolved]
  - Influenza [Not Recovered/Not Resolved]
  - Sinusitis [Not Recovered/Not Resolved]
  - Psoriasis [Not Recovered/Not Resolved]
  - Blood glucose increased [Unknown]
  - Decreased immune responsiveness [Unknown]
  - Off label use [Recovered/Resolved]

NARRATIVE: CASE EVENT DATE: 20220101
